FAERS Safety Report 25213127 (Version 1)
Quarter: 2025Q2

REPORT INFORMATION
  Report Type: Spontaneous
  Country: JP (occurrence: JP)
  Receive Date: 20250418
  Receipt Date: 20250418
  Transmission Date: 20250717
  Serious: Yes (Other)
  Sender: PFIZER
  Company Number: JP-PFIZER INC-PV202500012372

PATIENT
  Age: 27 Year
  Sex: Female

DRUGS (1)
  1. LORBRENA [Suspect]
     Active Substance: LORLATINIB

REACTIONS (5)
  - Neuropathy peripheral [Unknown]
  - Hallucination, auditory [Unknown]
  - Oedema [Not Recovered/Not Resolved]
  - Dyslipidaemia [Recovering/Resolving]
  - Affective disorder [Recovered/Resolved]
